FAERS Safety Report 11644735 (Version 1)
Quarter: 2015Q4

REPORT INFORMATION
  Report Type: Report from Study
  Country: US (occurrence: US)
  Receive Date: 20151020
  Receipt Date: 20151020
  Transmission Date: 20160304
  Serious: Yes (Other)
  Sender: FDA-Public Use
  Company Number: US-GILEAD-2015-0171200

PATIENT
  Age: 69 Year
  Sex: Male

DRUGS (4)
  1. GAZYVA [Concomitant]
     Active Substance: OBINUTUZUMAB
     Indication: NON-HODGKIN^S LYMPHOMA TRANSFORMED RECURRENT
  2. IDELALISIB [Suspect]
     Active Substance: IDELALISIB
     Indication: B-CELL LYMPHOMA
     Dosage: 150 MG, QD
     Route: 048
     Dates: start: 201504, end: 201509
  3. IDELALISIB [Suspect]
     Active Substance: IDELALISIB
     Dosage: 150 MG, BID
     Route: 048
     Dates: start: 20141205
  4. IDELALISIB [Suspect]
     Active Substance: IDELALISIB
     Indication: NON-HODGKIN^S LYMPHOMA TRANSFORMED RECURRENT
     Dosage: 150 MG, QD
     Route: 048
     Dates: start: 20150105

REACTIONS (4)
  - Organising pneumonia [Unknown]
  - Peripheral swelling [Unknown]
  - Dermatitis bullous [Unknown]
  - Erythema [Unknown]

NARRATIVE: CASE EVENT DATE: 201501
